FAERS Safety Report 12692217 (Version 2)
Quarter: 2016Q3

REPORT INFORMATION
  Report Type: Report from Study
  Country: CA (occurrence: CA)
  Receive Date: 20160828
  Receipt Date: 20160921
  Transmission Date: 20161109
  Serious: Yes (Other)
  Sender: FDA-Public Use
  Company Number: PHHY2016CA116772

PATIENT
  Age: 70 Year
  Sex: Male

DRUGS (2)
  1. SANDOSTATIN LAR DEPOT [Suspect]
     Active Substance: OCTREOTIDE ACETATE
     Indication: CARCINOID TUMOUR OF THE SMALL BOWEL
     Dosage: 30 MG, QMO, EVERY 4 WEEKS
     Route: 030
     Dates: start: 20160823
  2. SANDOSTATIN [Suspect]
     Active Substance: OCTREOTIDE ACETATE
     Indication: CARCINOID TUMOUR OF THE SMALL BOWEL
     Dosage: UNK
     Route: 058
     Dates: start: 20160815, end: 20160821

REACTIONS (7)
  - Blood pressure systolic increased [Unknown]
  - Injection site induration [Unknown]
  - Haemorrhoids [Unknown]
  - Nausea [Recovered/Resolved]
  - Injection site pain [Unknown]
  - Faeces discoloured [Unknown]
  - Injection site eczema [Unknown]

NARRATIVE: CASE EVENT DATE: 20160815
